FAERS Safety Report 9031708 (Version 2)
Quarter: 2013Q1

REPORT INFORMATION
  Report Type: Spontaneous
  Country: GB (occurrence: GB)
  Receive Date: 20130124
  Receipt Date: 20130228
  Transmission Date: 20140127
  Serious: Yes (Other)
  Sender: FDA-Public Use
  Company Number: GB-AMGEN-GBRSP2013004722

PATIENT
  Age: 31 Year
  Sex: Male

DRUGS (1)
  1. FILGRASTIM [Suspect]
     Indication: PRODUCT USED FOR UNKNOWN INDICATION
     Dosage: 300 MUG, UNK
     Route: 058

REACTIONS (3)
  - Neuromyelitis optica [Unknown]
  - Acute disseminated encephalomyelitis [Unknown]
  - Neutrophil count increased [Unknown]
